FAERS Safety Report 8263677-9 (Version None)
Quarter: 2012Q2

REPORT INFORMATION
  Report Type: 
  Country: None (occurrence: None)
  Receive Date: 20120405
  Receipt Date: 20120328
  Transmission Date: 20120825
  Serious: No
  Sender: FDA-Public Use
  Company Number: US-BAYER-2012-030718

PATIENT

DRUGS (1)
  1. ALEVE (CAPLET) [Suspect]
     Indication: ARTHRALGIA
     Route: 048

REACTIONS (3)
  - NASAL OBSTRUCTION [None]
  - NASAL DRYNESS [None]
  - EAR DISCOMFORT [None]
